FAERS Safety Report 10248626 (Version 1)
Quarter: 2014Q2

REPORT INFORMATION
  Report Type: Spontaneous
  Country: FR (occurrence: FR)
  Receive Date: 20140620
  Receipt Date: 20140620
  Transmission Date: 20141212
  Serious: Yes (Other)
  Sender: FDA-Public Use
  Company Number: PHHY2014FR075683

PATIENT
  Age: 12 Year
  Sex: Male

DRUGS (3)
  1. RITALINE LP [Suspect]
     Indication: DISTURBANCE IN ATTENTION
     Dosage: 20 MG, UNK
     Dates: end: 201403
  2. RITALINE LP [Suspect]
     Dosage: 30 MG, UNK
     Dates: start: 201403, end: 201403
  3. RITALINE LP [Suspect]
     Dosage: 20 MG, UNK

REACTIONS (1)
  - Complex regional pain syndrome [Recovered/Resolved]
